FAERS Safety Report 16063741 (Version 2)
Quarter: 2019Q2

REPORT INFORMATION
  Report Type: Report from Study
  Country: RU (occurrence: RU)
  Receive Date: 20190312
  Receipt Date: 20190415
  Transmission Date: 20190711
  Serious: Yes (Hospitalization, Other)
  Sender: FDA-Public Use
  Company Number: RU-ASTRAZENECA-2019SE38607

PATIENT
  Age: 63 Year
  Sex: Female
  Weight: 73 kg

DRUGS (6)
  1. PERINEVA [Concomitant]
     Active Substance: PERINDOPRIL ERBUMINE
  2. ROSUVASTATIN. [Concomitant]
     Active Substance: ROSUVASTATIN
  3. FORXIGA [Suspect]
     Active Substance: DAPAGLIFLOZIN
     Indication: TYPE 2 DIABETES MELLITUS
     Route: 048
  4. DIABETON [Concomitant]
     Active Substance: GLICLAZIDE
  5. PREDUCTAL [Concomitant]
     Active Substance: TRIMETAZIDINE DIHYDROCHLORIDE
  6. GLUCOPHAGE [Concomitant]
     Active Substance: METFORMIN HYDROCHLORIDE

REACTIONS (6)
  - Pain in extremity [Unknown]
  - Feeling jittery [Unknown]
  - Feeling abnormal [Unknown]
  - Angina unstable [Recovering/Resolving]
  - Blood pressure increased [Unknown]
  - Electrocardiogram abnormal [Recovering/Resolving]

NARRATIVE: CASE EVENT DATE: 20181218
